FAERS Safety Report 16155065 (Version 1)
Quarter: 2019Q2

REPORT INFORMATION
  Report Type: Spontaneous
  Country: CA (occurrence: CA)
  Receive Date: 20190403
  Receipt Date: 20190403
  Transmission Date: 20190711
  Serious: Yes (Death)
  Sender: FDA-Public Use
  Company Number: CA-ALLERGAN-1914769US

PATIENT
  Sex: Female

DRUGS (4)
  1. BOTULINUM TOXIN TYPE A UNK [Suspect]
     Active Substance: BOTULINUM TOXIN TYPE A
     Indication: NECK PAIN
  2. LIDOCAINE HYDROCHLORIDE. [Suspect]
     Active Substance: LIDOCAINE HYDROCHLORIDE
     Indication: PRODUCT USED FOR UNKNOWN INDICATION
     Route: 065
  3. BOTULINUM TOXIN TYPE A UNK [Suspect]
     Active Substance: BOTULINUM TOXIN TYPE A
     Indication: BACK PAIN
     Dosage: UNK, SINGLE
     Route: 030
  4. BOTULINUM TOXIN TYPE A UNK [Suspect]
     Active Substance: BOTULINUM TOXIN TYPE A
     Indication: MUSCLE SPASMS

REACTIONS (9)
  - Hemiparesis [Fatal]
  - Cardio-respiratory arrest [Fatal]
  - Anxiety [Fatal]
  - Dizziness [Fatal]
  - Anaphylactic reaction [Fatal]
  - Loss of consciousness [Fatal]
  - Off label use [Unknown]
  - Ventricular fibrillation [Fatal]
  - Seizure [Fatal]
